FAERS Safety Report 20449258 (Version 1)
Quarter: 2022Q1

REPORT INFORMATION
  Report Type: Report from Study
  Country: DE (occurrence: DE)
  Receive Date: 20220209
  Receipt Date: 20220209
  Transmission Date: 20220423
  Serious: Yes (Death, Other)
  Sender: FDA-Public Use
  Company Number: DE-JNJFOC-20220201182

PATIENT
  Age: 68 Year
  Sex: Female

DRUGS (2)
  1. BORTEZOMIB [Suspect]
     Active Substance: BORTEZOMIB
     Indication: Plasma cell myeloma
     Dosage: 1.5 MILLIGRAM
     Route: 065
     Dates: start: 20190314
  2. GRANISETRON [Concomitant]
     Active Substance: GRANISETRON
     Dosage: 1 MILLIGRAM, QD
     Route: 042
     Dates: start: 20180903, end: 20180903

REACTIONS (1)
  - Hip fracture [Fatal]

NARRATIVE: CASE EVENT DATE: 20191017
